FAERS Safety Report 19185840 (Version 1)
Quarter: 2021Q2

REPORT INFORMATION
  Report Type: Report from Study
  Country: IT (occurrence: IT)
  Receive Date: 20210427
  Receipt Date: 20210427
  Transmission Date: 20210717
  Serious: Yes (Hospitalization)
  Sender: FDA-Public Use
  Company Number: IT-GW PHARMA-202104ITGW01527

PATIENT

DRUGS (5)
  1. FRISIUM [Concomitant]
     Active Substance: CLOBAZAM
     Indication: SEVERE MYOCLONIC EPILEPSY OF INFANCY
     Dosage: 7.5 MILLIGRAM, QD (ONCE)
     Route: 065
     Dates: start: 2010
  2. EPIDIOLEX [Suspect]
     Active Substance: CANNABIDIOL
     Indication: SEVERE MYOCLONIC EPILEPSY OF INFANCY
     Dosage: 4.65 MG/KG/DAY, 50 MILLIGRAM, BID
     Route: 048
     Dates: start: 20210401, end: 20210406
  3. EPIDIOLEX [Suspect]
     Active Substance: CANNABIDIOL
     Dosage: 4.65 MG/KG/DAY, 50 MILLIGRAM, BID
     Route: 048
     Dates: start: 20210417
  4. DEPAKIN [Concomitant]
     Active Substance: VALPROATE SODIUM
     Indication: SEVERE MYOCLONIC EPILEPSY OF INFANCY
     Dosage: 150 MILLIGRAM, TID
     Route: 065
     Dates: start: 2008
  5. DIACOMIT [Concomitant]
     Active Substance: STIRIPENTOL
     Indication: SEVERE MYOCLONIC EPILEPSY OF INFANCY
     Dosage: 375 MILLIGRAM, BID
     Route: 065
     Dates: start: 2010

REACTIONS (3)
  - Pyrexia [Recovered/Resolved]
  - Rectal haemorrhage [Recovered/Resolved]
  - Faecaloma [Recovered/Resolved]

NARRATIVE: CASE EVENT DATE: 20210405
